FAERS Safety Report 9893670 (Version 2)
Quarter: 2014Q1

REPORT INFORMATION
  Report Type: Spontaneous
  Country: US (occurrence: US)
  Receive Date: 20140213
  Receipt Date: 20140224
  Transmission Date: 20141002
  Serious: Yes (Death, Life-Threatening, Hospitalization, Other)
  Sender: FDA-Public Use
  Company Number: US-009507513-1402USA005819

PATIENT
  Sex: Female
  Weight: 94.33 kg

DRUGS (4)
  1. JANUVIA [Suspect]
     Indication: TYPE 2 DIABETES MELLITUS
     Dosage: 50 MG, BID
     Route: 048
     Dates: start: 20091021, end: 20101123
  2. JANUVIA [Suspect]
     Dosage: 100 MG, BID
     Route: 048
     Dates: start: 20110121, end: 20111008
  3. JANUVIA [Suspect]
     Dosage: 100 MG, QD
     Route: 048
  4. JANUVIA [Suspect]
     Dosage: 50 MG, QD
     Route: 048

REACTIONS (31)
  - Pancreatic carcinoma [Fatal]
  - Biliary sphincterotomy [Unknown]
  - Bile duct stent insertion [Unknown]
  - Hiatus hernia [Unknown]
  - Pancreaticoduodenectomy [Unknown]
  - Jejunostomy [Unknown]
  - Gastritis [Unknown]
  - Dehydration [Unknown]
  - Pneumonia aspiration [Fatal]
  - Metastases to lymph nodes [Unknown]
  - Metastases to liver [Unknown]
  - Renal failure [Fatal]
  - Renal failure acute [Unknown]
  - Hypertension [Unknown]
  - Nephropathy [Unknown]
  - Intentional overdose [Unknown]
  - Urinary tract infection [Unknown]
  - Adjustment disorder [Unknown]
  - Type V hyperlipidaemia [Unknown]
  - Hypertonic bladder [Unknown]
  - Liver disorder [Unknown]
  - Abdominal cavity drainage [Unknown]
  - Vascular graft occlusion [Unknown]
  - Renal vein occlusion [Unknown]
  - Shunt occlusion [Unknown]
  - Fatigue [Unknown]
  - Anaemia [Unknown]
  - Haematochezia [Unknown]
  - Abdominal neoplasm [Unknown]
  - Liver function test abnormal [Unknown]
  - Radiotherapy [Unknown]
